FAERS Safety Report 8804626 (Version 1)
Quarter: 2012Q4

REPORT INFORMATION
  Report Type: 
  Country: US (occurrence: US)
  Receive Date: 20120922
  Receipt Date: 20120922
  Transmission Date: 20130627
  Serious: No
  Sender: FDA-Public Use
  Company Number: US-009507513-1208USA010776

PATIENT
  Sex: Male
  Weight: 66.21 kg

DRUGS (7)
  1. VICTRELIS [Suspect]
     Dosage: 800 mg, tid
     Route: 048
  2. PEGINTRON [Suspect]
  3. RIBAPAK [Concomitant]
  4. LISINOPRIL [Concomitant]
     Dosage: UNK , UNK
  5. METFORMIN [Concomitant]
     Dosage: UNK, UNK
  6. LEVOTHYROXINE SODIUM [Concomitant]
     Dosage: UNK, UNK
  7. NIACIN [Concomitant]
     Dosage: UNK , UNK

REACTIONS (2)
  - White blood cell count decreased [Unknown]
  - Red blood cell count decreased [Unknown]
